FAERS Safety Report 14347884 (Version 2)
Quarter: 2018Q1

REPORT INFORMATION
  Report Type: Spontaneous
  Country: BR (occurrence: BR)
  Receive Date: 20180103
  Receipt Date: 20180109
  Transmission Date: 20180509
  Serious: Yes (Other)
  Sender: FDA-Public Use
  Company Number: BR-JNJFOC-20171233933

PATIENT
  Age: 32 Year
  Sex: Male

DRUGS (1)
  1. INVEGA SUSTENNA [Suspect]
     Active Substance: PALIPERIDONE PALMITATE
     Indication: BIPOLAR DISORDER
     Route: 030
     Dates: start: 201705, end: 20171222

REACTIONS (9)
  - Depression [Unknown]
  - Sleep disorder [Unknown]
  - Schizophrenia [Unknown]
  - Drug dose omission [Unknown]
  - Psychotic disorder [Unknown]
  - Mood altered [Unknown]
  - Product use in unapproved indication [Unknown]
  - Off label use [Unknown]
  - Product availability issue [Unknown]

NARRATIVE: CASE EVENT DATE: 201705
